FAERS Safety Report 9744444 (Version 1)
Quarter: 2013Q4

REPORT INFORMATION
  Report Type: Spontaneous
  Country: FR (occurrence: FR)
  Receive Date: 20131210
  Receipt Date: 20131210
  Transmission Date: 20140711
  Serious: Yes (Hospitalization)
  Sender: FDA-Public Use
  Company Number: FR-ASTRAZENECA-2013SE88693

PATIENT
  Age: 27620 Day
  Sex: Female

DRUGS (10)
  1. INEXIUM [Suspect]
     Route: 048
     Dates: start: 20131002, end: 20131004
  2. DAFALGAN [Suspect]
     Indication: PAIN
     Dosage: PERFALGAN
     Route: 042
     Dates: start: 20131002, end: 20131003
  3. DAFALGAN [Suspect]
     Indication: PAIN
     Dosage: 1 G 4 TIMES A DAY
     Route: 048
     Dates: start: 20131004, end: 20131005
  4. BIPROFENID SR [Suspect]
     Indication: PAIN
     Dosage: PROFENID
     Route: 048
     Dates: start: 20131002, end: 20131003
  5. BIPROFENID SR [Suspect]
     Indication: PAIN
     Route: 048
     Dates: start: 20131004, end: 20131005
  6. PANTOPRAZOLE [Suspect]
     Indication: PAIN
     Route: 048
     Dates: start: 20131004, end: 20131004
  7. THIOCOLCHICOSIDE [Suspect]
     Indication: MUSCLE SPASMS
     Route: 048
     Dates: start: 20131004, end: 20131005
  8. ALPRAZOLAM [Suspect]
     Indication: ANXIETY
     Route: 048
     Dates: start: 20131004, end: 20131004
  9. LOVENOX [Suspect]
     Route: 042
     Dates: start: 20131003, end: 20131004
  10. LAMALINE [Concomitant]
     Dates: end: 20131005

REACTIONS (7)
  - Hypotension [Recovered/Resolved]
  - Bradycardia [Recovered/Resolved]
  - Abdominal rigidity [Recovered/Resolved]
  - Diarrhoea [Recovered/Resolved]
  - Malaise [Recovered/Resolved]
  - Abdominal pain [Recovered/Resolved]
  - Hyperhidrosis [Recovered/Resolved]
